FAERS Safety Report 21511563 (Version 5)
Quarter: 2023Q1

REPORT INFORMATION
  Report Type: Report from Study
  Country: US (occurrence: US)
  Receive Date: 20221027
  Receipt Date: 20230104
  Transmission Date: 20230418
  Serious: Yes (Hospitalization)
  Sender: FDA-Public Use
  Company Number: US-GBT-017532

PATIENT
  Age: 57 Year
  Sex: Female
  Weight: 75.3 kg

DRUGS (24)
  1. OXBRYTA [Suspect]
     Active Substance: VOXELOTOR
     Indication: Sickle cell disease
     Dosage: LAST DOSE PRIOR TO THE EVENT ONSET WAS 29-SEP-2021.
     Route: 048
     Dates: start: 20200214
  2. DILAUDID [Concomitant]
     Active Substance: HYDROMORPHONE HYDROCHLORIDE
     Indication: Sickle cell anaemia with crisis
     Route: 048
  3. CYANOCOBALAMIN [Concomitant]
     Active Substance: CYANOCOBALAMIN
     Indication: Product used for unknown indication
     Dosage: 1000 MCG
     Route: 048
     Dates: start: 2019
  4. FOLIC ACID [Concomitant]
     Active Substance: FOLIC ACID
     Indication: Product used for unknown indication
     Route: 048
     Dates: start: 2019
  5. HYDROXYUREA [Concomitant]
     Active Substance: HYDROXYUREA
     Indication: Sickle cell disease
     Route: 048
     Dates: start: 2019
  6. LEVOTHYROXINE [Concomitant]
     Active Substance: LEVOTHYROXINE
     Indication: Product used for unknown indication
     Dosage: 50 MCG
     Route: 048
     Dates: start: 2019
  7. AMLODIPINE [Concomitant]
     Active Substance: AMLODIPINE BESYLATE
     Indication: Product used for unknown indication
     Route: 048
     Dates: start: 2019
  8. BISACODYL [Concomitant]
     Active Substance: BISACODYL
     Indication: Constipation
     Dosage: TIME INTERVAL: AS NECESSARY
     Route: 048
     Dates: start: 2019
  9. FERROUS SULFATE [Concomitant]
     Active Substance: FERROUS SULFATE
     Indication: Product used for unknown indication
     Route: 048
     Dates: start: 201908
  10. LIDOCAINE [Concomitant]
     Active Substance: LIDOCAINE
     Indication: Product used for unknown indication
     Dosage: TIME INTERVAL: AS NECESSARY: 1 PATCH
     Route: 061
  11. LORATADINE [Concomitant]
     Active Substance: LORATADINE
     Indication: Product used for unknown indication
     Route: 048
     Dates: start: 2019
  12. VITAMINS [Concomitant]
     Active Substance: VITAMINS
     Indication: Product used for unknown indication
     Route: 048
     Dates: start: 20190119
  13. SERTRALINE [Concomitant]
     Active Substance: SERTRALINE HYDROCHLORIDE
     Indication: Product used for unknown indication
     Route: 048
     Dates: start: 2019
  14. ZINC SULFATE [Concomitant]
     Active Substance: ZINC SULFATE
     Indication: Product used for unknown indication
     Route: 048
     Dates: start: 2019
  15. CALCIUM CARBONATE [Concomitant]
     Active Substance: CALCIUM CARBONATE
     Indication: Product used for unknown indication
     Route: 048
     Dates: start: 20191227
  16. ENDARI [Concomitant]
     Active Substance: GLUTAMINE
     Indication: Product used for unknown indication
     Route: 048
     Dates: start: 20201106
  17. OXYCODONE [Concomitant]
     Active Substance: OXYCODONE
     Indication: Pain
     Dosage: TIME INTERVAL: AS NECESSARY
     Route: 048
     Dates: start: 2019, end: 2021
  18. PROCRIT [Concomitant]
     Active Substance: ERYTHROPOIETIN
     Indication: Product used for unknown indication
     Dates: start: 2020, end: 2021
  19. pepcid, unknown active ingredients [Concomitant]
     Indication: Product used for unknown indication
     Dosage: TIME INTERVAL: AS NECESSARY
     Route: 048
     Dates: start: 2020, end: 2021
  20. ASPIRIN [Concomitant]
     Active Substance: ASPIRIN
     Indication: Product used for unknown indication
     Route: 048
     Dates: start: 2019, end: 2021
  21. ATORVASTATIN [Concomitant]
     Active Substance: ATORVASTATIN
     Indication: Product used for unknown indication
     Route: 048
     Dates: start: 2019, end: 2021
  22. PANTOPRAZOLE [Concomitant]
     Active Substance: PANTOPRAZOLE
     Indication: Product used for unknown indication
     Route: 048
     Dates: start: 2019, end: 2021
  23. SIMVASTATIN [Concomitant]
     Active Substance: SIMVASTATIN
     Indication: Product used for unknown indication
     Route: 048
     Dates: start: 2019, end: 2021
  24. LOVENOX [Concomitant]
     Active Substance: ENOXAPARIN SODIUM
     Indication: Thrombocytopenia

REACTIONS (2)
  - Sickle cell anaemia with crisis [Recovered/Resolved]
  - Anaemia [Recovered/Resolved]

NARRATIVE: CASE EVENT DATE: 20210906
